FAERS Safety Report 5103082-7 (Version None)
Quarter: 2006Q3

REPORT INFORMATION
  Report Type: 
  Country: None (occurrence: None)
  Receive Date: 20060907
  Receipt Date: 20060824
  Transmission Date: 20061208
  Serious: Yes (Other)
  Sender: FDA-Public Use
  Company Number: 112293ISR

PATIENT
  Age: 66 Year
  Sex: Male

DRUGS (2)
  1. PROPRANOLOL [Suspect]
     Indication: SUPRAVENTRICULAR TACHYCARDIA
     Dosage: 120 MILLIGRAM, ORAL
     Route: 048
     Dates: start: 19751101, end: 19760701
  2. PRACTOLOL [Suspect]
     Indication: SUPRAVENTRICULAR TACHYCARDIA
     Dosage: 90 MILLIGRAM, ORAL
     Route: 048
     Dates: start: 19731101, end: 19751101

REACTIONS (2)
  - INTESTINAL OBSTRUCTION [None]
  - PERITONITIS SCLEROSING [None]
